FAERS Safety Report 22284382 (Version 2)
Quarter: 2023Q2

REPORT INFORMATION
  Report Type: Report from Study
  Country: US (occurrence: US)
  Receive Date: 20230504
  Receipt Date: 20230506
  Transmission Date: 20230721
  Serious: No
  Sender: FDA-Public Use
  Company Number: US-002147023-NVSC2023US098906

PATIENT
  Sex: Female

DRUGS (1)
  1. COSENTYX [Suspect]
     Active Substance: SECUKINUMAB
     Indication: Product used for unknown indication
     Dosage: UNK
     Route: 030

REACTIONS (6)
  - Nerve injury [Unknown]
  - Electric shock sensation [Unknown]
  - Insomnia [Unknown]
  - Paraesthesia [Unknown]
  - Pain in extremity [Unknown]
  - Incorrect route of product administration [Unknown]
